FAERS Safety Report 13911076 (Version 1)
Quarter: 2017Q3

REPORT INFORMATION
  Report Type: Spontaneous
  Country: BR (occurrence: BR)
  Receive Date: 20170828
  Receipt Date: 20170828
  Transmission Date: 20171127
  Serious: Yes (Other)
  Sender: FDA-Public Use
  Company Number: BR-SA-2016SA204854

PATIENT
  Sex: Female
  Weight: 59 kg

DRUGS (2)
  1. AAS [Suspect]
     Active Substance: ASPIRIN
     Indication: HYPERCOAGULATION
     Route: 048
     Dates: start: 201511
  2. CLEXANE [Suspect]
     Active Substance: ENOXAPARIN SODIUM
     Indication: HYPERCOAGULATION
     Dosage: IT WAS NOT SPECIFIED IF THE PATIENT REFERRED TO THE PRESENTATION OF 60MG OR 40MG
     Route: 065
     Dates: start: 201511

REACTIONS (2)
  - Exposure during pregnancy [Unknown]
  - Abortion [Unknown]
